FAERS Safety Report 24193888 (Version 2)
Quarter: 2024Q3

REPORT INFORMATION
  Report Type: Spontaneous
  Country: US (occurrence: US)
  Receive Date: 20240809
  Receipt Date: 20240816
  Transmission Date: 20241017
  Serious: No
  Sender: SANOFI AVENTIS
  Company Number: US-SANOFI-02169492

PATIENT
  Age: 72 Year
  Sex: Male

DRUGS (1)
  1. LANTUS SOLOSTAR [Suspect]
     Active Substance: INSULIN GLARGINE
     Indication: Type 2 diabetes mellitus
     Dosage: 8 TO 9 UNITS BID; TWICE A DAY

REACTIONS (4)
  - Off label use [Unknown]
  - Product storage error [Unknown]
  - Expired product administered [Unknown]
  - Product prescribing issue [Unknown]
